FAERS Safety Report 4810084-4 (Version None)
Quarter: 2005Q4

REPORT INFORMATION
  Report Type: 
  Country: None (occurrence: None)
  Receive Date: 20051024
  Receipt Date: 20051007
  Transmission Date: 20060501
  Serious: Yes (Other)
  Sender: FDA-Public Use
  Company Number: 8011443

PATIENT
  Age: 7 Year
  Sex: Male
  Weight: 26.9 kg

DRUGS (3)
  1. EQUASYM [Suspect]
     Indication: ATTENTION DEFICIT/HYPERACTIVITY DISORDER
     Dosage: 40 MG 1/D PO
     Route: 048
     Dates: start: 20050627, end: 20050728
  2. MELATONIN [Concomitant]
  3. METHYLPHENIDATE HCL [Concomitant]

REACTIONS (6)
  - ABNORMAL BEHAVIOUR [None]
  - AFFECT LABILITY [None]
  - AGGRESSION [None]
  - INTENTIONAL SELF-INJURY [None]
  - IRRITABILITY [None]
  - TEARFULNESS [None]
